FAERS Safety Report 8617002 (Version 2)
Quarter: 2013Q4

REPORT INFORMATION
  Report Type: Spontaneous
  Country: US (occurrence: US)
  Receive Date: 20120615
  Receipt Date: 20131220
  Transmission Date: 20140711
  Serious: Yes (Hospitalization, Other)
  Sender: FDA-Public Use
  Company Number: US-RB-041392-12

PATIENT
  Age: 8 Year
  Sex: Male

DRUGS (10)
  1. DEXTROMETHORPHAN [Suspect]
     Indication: NASOPHARYNGITIS
  2. CITALOPRAM [Suspect]
     Indication: ATTENTION DEFICIT/HYPERACTIVITY DISORDER
  3. CITALOPRAM [Suspect]
     Indication: POST-TRAUMATIC STRESS DISORDER
  4. CLONIDINE [Suspect]
     Indication: ATTENTION DEFICIT/HYPERACTIVITY DISORDER
  5. CLONIDINE [Suspect]
     Indication: POST-TRAUMATIC STRESS DISORDER
  6. METHYLPHENIDATE [Suspect]
     Indication: ATTENTION DEFICIT/HYPERACTIVITY DISORDER
  7. METHYLPHENIDATE [Suspect]
     Indication: POST-TRAUMATIC STRESS DISORDER
  8. AMFETAMINE [Suspect]
     Indication: PRODUCT USED FOR UNKNOWN INDICATION
  9. UNSPECIFIED INGREDIENT [Suspect]
     Indication: PRODUCT USED FOR UNKNOWN INDICATION
  10. DIPHENHYDRAMINE [Suspect]
     Indication: PRODUCT USED FOR UNKNOWN INDICATION

REACTIONS (14)
  - Serotonin syndrome [Recovering/Resolving]
  - Encephalopathy [Recovering/Resolving]
  - Agitation [Recovering/Resolving]
  - Hypertension [Recovering/Resolving]
  - Torticollis [Recovering/Resolving]
  - Clonus [Recovering/Resolving]
  - Tachycardia [Recovering/Resolving]
  - Speech disorder [Recovering/Resolving]
  - Tremor [Recovering/Resolving]
  - Urinary incontinence [Recovering/Resolving]
  - Salivary hypersecretion [Recovering/Resolving]
  - Mydriasis [Recovering/Resolving]
  - Flushing [Recovering/Resolving]
  - Somnolence [Recovering/Resolving]
